FAERS Safety Report 4304326-1 (Version None)
Quarter: 2004Q1

REPORT INFORMATION
  Report Type: 
  Country: None (occurrence: None)
  Receive Date: 20040224
  Receipt Date: 20040209
  Transmission Date: 20041129
  Serious: Yes (Hospitalization)
  Sender: FDA-Public Use
  Company Number: 191008

PATIENT
  Age: 57 Year
  Sex: Female
  Weight: 53.978 kg

DRUGS (6)
  1. AVONEX [Suspect]
     Indication: MULTIPLE SCLEROSIS
     Dosage: 30 MCG QW IM
     Route: 030
     Dates: start: 19950101, end: 20030101
  2. AVONEX [Suspect]
     Indication: MULTIPLE SCLEROSIS
     Dosage: 30 MCG QW IM
     Route: 030
     Dates: start: 20030101
  3. SYNTHROID [Concomitant]
  4. MACRODANTIN [Concomitant]
  5. OXYBUTYNIN [Concomitant]
  6. ACTONEL [Concomitant]

REACTIONS (4)
  - BLOOD PRESSURE INCREASED [None]
  - INFLUENZA LIKE ILLNESS [None]
  - LOCALISED OSTEOARTHRITIS [None]
  - MIDDLE INSOMNIA [None]
